FAERS Safety Report 6084855-3 (Version None)
Quarter: 2009Q1

REPORT INFORMATION
  Report Type: 
  Country: None (occurrence: None)
  Receive Date: 20090218
  Receipt Date: 20090202
  Transmission Date: 20090719
  Serious: No
  Sender: FDA-Public Use
  Company Number: 8041752

PATIENT
  Sex: Male
  Weight: 67.1 kg

DRUGS (7)
  1. CIMZIA [Suspect]
     Indication: CROHN'S DISEASE
     Dosage: 400 MG SC
     Route: 058
     Dates: start: 20080701
  2. PREDNISONE [Concomitant]
  3. MERCAPTOPURINE [Concomitant]
  4. LIPITOR [Concomitant]
  5. PREVACID [Concomitant]
  6. AMBIEN CR [Concomitant]
  7. KLONOPIN [Concomitant]

REACTIONS (3)
  - BRONCHITIS [None]
  - GASTROENTERITIS VIRAL [None]
  - SINUSITIS [None]
